FAERS Safety Report 23672089 (Version 1)
Quarter: 2024Q1

REPORT INFORMATION
  Report Type: Spontaneous
  Country: RO (occurrence: RO)
  Receive Date: 20240326
  Receipt Date: 20240326
  Transmission Date: 20240410
  Serious: Yes (Death, Other)
  Sender: FDA-Public Use
  Company Number: RO-ASTELLAS-2024US008580

PATIENT
  Age: 50 Year

DRUGS (1)
  1. GILTERITINIB [Suspect]
     Active Substance: GILTERITINIB
     Indication: Acute myeloid leukaemia refractory
     Route: 065

REACTIONS (3)
  - Neoplasm malignant [Fatal]
  - Nervous system disorder [Unknown]
  - Metastases to central nervous system [Unknown]
